FAERS Safety Report 7721467-7 (Version None)
Quarter: 2011Q3

REPORT INFORMATION
  Report Type: 
  Country: None (occurrence: None)
  Receive Date: 20110831
  Receipt Date: 20110816
  Transmission Date: 20111222
  Serious: Yes (Other)
  Sender: FDA-Public Use
  Company Number: RS-JNJFOC-20110809114

PATIENT
  Sex: Female

DRUGS (6)
  1. GOLIMUMAB [Suspect]
     Dates: start: 20110815
  2. GOLIMUMAB [Suspect]
     Indication: COLITIS ULCERATIVE
     Dates: start: 20110620
  3. SULFASALAZINE [Concomitant]
     Indication: COLITIS ULCERATIVE
     Route: 048
     Dates: start: 20081226
  4. GOLIMUMAB [Suspect]
     Dates: start: 20090302
  5. FOLIC ACID [Concomitant]
     Route: 048
     Dates: start: 20081229
  6. PROBIOTIC [Concomitant]
     Indication: COLITIS ULCERATIVE
     Route: 048
     Dates: start: 20081229

REACTIONS (1)
  - BASAL CELL CARCINOMA [None]
